FAERS Safety Report 25402252 (Version 1)
Quarter: 2025Q2

REPORT INFORMATION
  Report Type: Spontaneous
  Country: IT (occurrence: IT)
  Receive Date: 20250605
  Receipt Date: 20250605
  Transmission Date: 20250717
  Serious: Yes (Hospitalization, Other)
  Sender: AMGEN
  Company Number: IT-AMGEN-ITASP2025105129

PATIENT

DRUGS (4)
  1. ADALIMUMAB [Suspect]
     Active Substance: ADALIMUMAB
     Indication: Colitis ulcerative
     Route: 065
  2. ADALIMUMAB [Suspect]
     Active Substance: ADALIMUMAB
     Indication: Crohn^s disease
  3. USTEKINUMAB [Suspect]
     Active Substance: USTEKINUMAB
     Indication: Colitis ulcerative
     Route: 065
  4. USTEKINUMAB [Suspect]
     Active Substance: USTEKINUMAB
     Indication: Crohn^s disease

REACTIONS (10)
  - Colitis ulcerative [Unknown]
  - Crohn^s disease [Unknown]
  - Infection [Unknown]
  - Hypokalaemia [Unknown]
  - Clostridium difficile infection [Unknown]
  - Hypocalcaemia [Unknown]
  - Rash [Unknown]
  - Nausea [Unknown]
  - Conjunctivitis [Unknown]
  - Asthenia [Unknown]
